FAERS Safety Report 5389412-X (Version None)
Quarter: 2007Q3

REPORT INFORMATION
  Report Type: 
  Country: None (occurrence: None)
  Receive Date: 20070717
  Receipt Date: 20070711
  Transmission Date: 20080115
  Serious: Yes (Hospitalization, Other)
  Sender: FDA-Public Use
  Company Number: JP-ASTRAZENECA-2007AP03607

PATIENT
  Age: 75 Year
  Sex: Female
  Weight: 51.5 kg

DRUGS (6)
  1. NOLVADEX [Suspect]
     Indication: BREAST CANCER
     Route: 048
     Dates: start: 19991201, end: 20040801
  2. TICLOPIDINE HCL [Concomitant]
     Route: 048
  3. PLETAL [Concomitant]
     Route: 048
  4. AMARYL [Concomitant]
     Route: 048
  5. NORVASC [Concomitant]
     Route: 048
  6. METHYCOBAL [Concomitant]
     Route: 048

REACTIONS (2)
  - HEPATIC NEOPLASM MALIGNANT [None]
  - HEPATIC STEATOSIS [None]
